FAERS Safety Report 14456491 (Version 1)
Quarter: 2018Q1

REPORT INFORMATION
  Report Type: Spontaneous
  Country: DE (occurrence: DE)
  Receive Date: 20180130
  Receipt Date: 20180130
  Transmission Date: 20180509
  Serious: Yes (Other)
  Sender: FDA-Public Use
  Company Number: DE-MERCK KGAA-2041044

PATIENT
  Age: 66 Year
  Sex: Male

DRUGS (5)
  1. LEVOTHYROXINE SODIUM. [Suspect]
     Active Substance: LEVOTHYROXINE SODIUM
  2. ASS PROTECTID [Concomitant]
  3. PANTOPRAZOL [Concomitant]
     Active Substance: PANTOPRAZOLE SODIUM
  4. NOVOTHYROX [Suspect]
     Active Substance: LEVOTHYROXINE SODIUM
     Indication: HYPOTHYROIDISM
  5. VALSACOR [Concomitant]
     Active Substance: VALSARTAN

REACTIONS (8)
  - Vomiting [None]
  - Weight loss poor [None]
  - Flatulence [None]
  - Cerebrovascular accident [None]
  - Dyspepsia [Not Recovered/Not Resolved]
  - Eructation [None]
  - Gastrooesophageal reflux disease [Not Recovered/Not Resolved]
  - Acidosis [Not Recovered/Not Resolved]

NARRATIVE: CASE EVENT DATE: 2014
